FAERS Safety Report 5599740-0 (Version None)
Quarter: 2008Q1

REPORT INFORMATION
  Report Type: 
  Country: None (occurrence: None)
  Receive Date: 20080117
  Receipt Date: 20080107
  Transmission Date: 20080703
  Serious: Yes (Death, Hospitalization)
  Sender: FDA-Public Use
  Company Number: 230001J08AUS

PATIENT
  Age: 37 Year
  Sex: Male

DRUGS (1)
  1. REBIF [Suspect]
     Dosage: 44 MCG, 3 IN 1 WEEKS, SUBCUTANEOUS
     Route: 058
     Dates: start: 20051027, end: 20071204

REACTIONS (2)
  - ROAD TRAFFIC ACCIDENT [None]
  - THROMBOSIS [None]
